FAERS Safety Report 6542347-9 (Version None)
Quarter: 2010Q1

REPORT INFORMATION
  Report Type: 
  Country: None (occurrence: None)
  Receive Date: 20100119
  Receipt Date: 20100105
  Transmission Date: 20100710
  Serious: Yes (Death)
  Sender: FDA-Public Use
  Company Number: US-ASTRAZENECA-2010SE00525

PATIENT
  Age: 37 Year
  Sex: Female

DRUGS (7)
  1. OMEPRAZOLE [Suspect]
     Route: 048
  2. BUPROPION [Suspect]
     Route: 048
  3. BUSPIRONE HCL [Suspect]
     Route: 048
  4. ETHANOL [Suspect]
     Route: 048
  5. IRON [Suspect]
     Route: 048
  6. DULOXETINE [Suspect]
     Route: 048
  7. DRUG UNKNOWN [Suspect]
     Route: 048

REACTIONS (2)
  - COMPLETED SUICIDE [None]
  - DRUG TOXICITY [None]
